FAERS Safety Report 15553491 (Version 2)
Quarter: 2024Q4

REPORT INFORMATION
  Report Type: Spontaneous
  Country: PT (occurrence: PT)
  Receive Date: 20181026
  Receipt Date: 20241126
  Transmission Date: 20250115
  Serious: Yes (Hospitalization, Other)
  Sender: ROCHE
  Company Number: PT-002147023-PHHY2018PT133827

PATIENT
  Age: 63 Year
  Sex: Female

DRUGS (1)
  1. LUCENTIS [Suspect]
     Active Substance: RANIBIZUMAB
     Indication: Product used for unknown indication
     Route: 065

REACTIONS (2)
  - Anterior chamber inflammation [Not Recovered/Not Resolved]
  - Eye inflammation [Not Recovered/Not Resolved]
